FAERS Safety Report 21700191 (Version 3)
Quarter: 2023Q2

REPORT INFORMATION
  Report Type: Spontaneous
  Country: GR (occurrence: GR)
  Receive Date: 20221208
  Receipt Date: 20230504
  Transmission Date: 20230721
  Serious: No
  Sender: FDA-Public Use
  Company Number: GR-PFIZER INC-PV202200112378

PATIENT
  Age: 10 Year
  Sex: Female
  Weight: 34 kg

DRUGS (2)
  1. GENOTROPIN [Suspect]
     Active Substance: SOMATROPIN
     Indication: Turner^s syndrome
     Dosage: 9.5MG/ 7 DAYS / 12MG
     Route: 058
     Dates: start: 201802
  2. GENOTROPIN [Suspect]
     Active Substance: SOMATROPIN
     Indication: Turner^s syndrome
     Dosage: 9.5MG/ 7 DAYS / 12MG
     Route: 058
     Dates: start: 201802

REACTIONS (3)
  - Expired device used [Unknown]
  - Device information output issue [Unknown]
  - Drug dose omission by device [Unknown]

NARRATIVE: CASE EVENT DATE: 20221125
